FAERS Safety Report 7552270-9 (Version None)
Quarter: 2011Q2

REPORT INFORMATION
  Report Type: 
  Country: None (occurrence: None)
  Receive Date: 20110616
  Receipt Date: 20041118
  Transmission Date: 20111010
  Serious: Yes (Hospitalization, Other)
  Sender: FDA-Public Use
  Company Number: PHHO2004CA16242

PATIENT
  Sex: Male

DRUGS (2)
  1. HYDROCHLOROTHIAZIDE [Concomitant]
  2. DIOVAN [Suspect]
     Indication: ESSENTIAL HYPERTENSION
     Route: 048

REACTIONS (5)
  - LOSS OF CONSCIOUSNESS [None]
  - ASTHENIA [None]
  - SHOCK [None]
  - VISION BLURRED [None]
  - PARALYSIS [None]
